FAERS Safety Report 7921097-8 (Version None)
Quarter: 2011Q4

REPORT INFORMATION
  Report Type: 
  Country: None (occurrence: None)
  Receive Date: 20111117
  Receipt Date: 20111031
  Transmission Date: 20120403
  Serious: Yes (Other)
  Sender: FDA-Public Use
  Company Number: BR-BAYER-2011-056388

PATIENT
  Age: 32 Year
  Sex: Female
  Weight: 62 kg

DRUGS (7)
  1. MYDRIACYL [Concomitant]
     Indication: EYE IRRITATION
  2. DIPYRONE TAB [Concomitant]
     Indication: HEADACHE
     Dosage: 1 DF, PRN
     Route: 048
  3. MIRENA [Suspect]
     Indication: ENDOMETRIOSIS
     Dosage: 20 MCG/24HR, CONT
     Route: 015
     Dates: start: 20110608
  4. MAXIDEX [Concomitant]
     Indication: EYE IRRITATION
     Dosage: UNK
     Route: 047
     Dates: start: 20110620
  5. DIPYRONE TAB [Concomitant]
     Dosage: 1 DF, PRN
     Route: 048
  6. TYLENOL W/ CODEINE NO. 3 [Concomitant]
     Indication: HEADACHE
     Dosage: 1 DF, PRN
     Route: 048
  7. DIPYRONE TAB [Concomitant]
     Dosage: 1 DF, PRN
     Route: 048

REACTIONS (9)
  - NIPPLE PAIN [None]
  - ABDOMINAL DISTENSION [None]
  - METRORRHAGIA [None]
  - DIARRHOEA [None]
  - ARTHRITIS [None]
  - ABDOMINAL PAIN [None]
  - VAGINAL HAEMORRHAGE [None]
  - HEADACHE [None]
  - ANKYLOSING SPONDYLITIS [None]
